FAERS Safety Report 9600893 (Version 1)
Quarter: 2013Q4

REPORT INFORMATION
  Report Type: Spontaneous
  Country: US (occurrence: US)
  Receive Date: 20131004
  Receipt Date: 20131004
  Transmission Date: 20140711
  Serious: No
  Sender: FDA-Public Use
  Company Number: US-AMGEN-USASP2013037781

PATIENT
  Age: 61 Year
  Sex: Female
  Weight: 97.96 kg

DRUGS (20)
  1. ENBREL [Suspect]
     Indication: PRODUCT USED FOR UNKNOWN INDICATION
     Dosage: 50 MG, QWK
     Route: 058
  2. METFORMIN [Concomitant]
     Dosage: 1000 MG, UNK
  3. PLAQUENIL                          /00072602/ [Concomitant]
     Dosage: 200 MG, UNK
  4. METHOTREXATE [Concomitant]
     Dosage: 50MG/2ML, UNK
  5. RESTASIS [Concomitant]
     Dosage: 0.05%, UNK
  6. BYETTA [Concomitant]
     Dosage: 5 MUG, UNK
  7. GLIMEPIRIDE [Concomitant]
     Dosage: 1 MG, UNK
  8. NORVASC [Concomitant]
     Dosage: 2.5 MG, UNK
  9. AVALIDE [Concomitant]
     Dosage: 150-12.5, UNK
  10. COREG [Concomitant]
     Dosage: 3.125 MG, UNK
  11. ASPIRIN LOW [Concomitant]
     Dosage: 81 MG EC, UNK
  12. FLEXERIL                           /00428402/ [Concomitant]
     Dosage: 10 MG, UNK
  13. ULTRAM ER [Concomitant]
     Dosage: 100 MG, UNK
  14. VITAMIN D                          /00107901/ [Concomitant]
     Dosage: 400 UNIT, UNK
  15. VITAMIN B-12 [Concomitant]
     Dosage: 250 MUG, UNK
  16. PREDNISONE [Concomitant]
     Dosage: 1 MG, UNK
  17. CO ENZYME Q10                      /00517201/ [Concomitant]
     Dosage: 50 MG, UNK
  18. CO Q10 [Concomitant]
     Dosage: 10 MG, UNK
  19. LIPITOR [Concomitant]
     Dosage: 10 MG, UNK
  20. VOLTAREN                           /00372301/ [Concomitant]
     Dosage: 1 %, UNK

REACTIONS (1)
  - Drug effect incomplete [Unknown]
